FAERS Safety Report 25892820 (Version 1)
Quarter: 2025Q4

REPORT INFORMATION
  Report Type: Spontaneous
  Country: GB (occurrence: GB)
  Receive Date: 20251007
  Receipt Date: 20251007
  Transmission Date: 20260118
  Serious: Yes (Other)
  Sender: TEVA
  Company Number: GB-MHRA-TPP27051474C1336748YC1759483120185

PATIENT
  Age: 58 Year
  Sex: Female
  Weight: 92 kg

DRUGS (4)
  1. DOXYCYCLINE [Suspect]
     Active Substance: DOXYCYCLINE
     Indication: Ill-defined disorder
     Route: 065
     Dates: start: 20251003
  2. BETAMETHASONE VALERATE\FUSIDIC ACID [Concomitant]
     Active Substance: BETAMETHASONE VALERATE\FUSIDIC ACID
     Indication: Ill-defined disorder
     Route: 065
     Dates: start: 20251001
  3. VALSARTAN [Concomitant]
     Active Substance: VALSARTAN
     Indication: Ill-defined disorder
     Dosage: EVERY DAY
     Route: 065
     Dates: start: 20250429
  4. DOXYCYCLINE [Concomitant]
     Active Substance: DOXYCYCLINE
     Indication: Ill-defined disorder
     Dosage: TWO NOW THEN ONE DAILY
     Route: 065
     Dates: start: 20251002

REACTIONS (1)
  - Laryngospasm [Unknown]

NARRATIVE: CASE EVENT DATE: 20251003
